FAERS Safety Report 6185659-3 (Version None)
Quarter: 2009Q2

REPORT INFORMATION
  Report Type: 
  Country: None (occurrence: None)
  Receive Date: 20090511
  Receipt Date: 20090430
  Transmission Date: 20091009
  Serious: Yes (Hospitalization)
  Sender: FDA-Public Use
  Company Number: PHHY2009CL16450

PATIENT
  Age: 79 Year
  Sex: Female

DRUGS (1)
  1. TAREG [Suspect]
     Indication: HYPERTENSION
     Dosage: UNK
     Dates: start: 20090301

REACTIONS (2)
  - ANGINA PECTORIS [None]
  - EXTRASYSTOLES [None]
